FAERS Safety Report 16855866 (Version 1)
Quarter: 2019Q3

REPORT INFORMATION
  Report Type: Report from Study
  Country: RU (occurrence: RU)
  Receive Date: 20190926
  Receipt Date: 20190926
  Transmission Date: 20191005
  Serious: Yes (Other)
  Sender: FDA-Public Use
  Company Number: RU-ASTRAZENECA-2019SF35378

PATIENT
  Age: 61 Year
  Sex: Male
  Weight: 60 kg

DRUGS (11)
  1. THROMBO ASS [Concomitant]
     Active Substance: ASPIRIN
  2. NORVASK [Concomitant]
     Active Substance: AMLODIPINE BESYLATE
  3. ATORIS [Concomitant]
     Active Substance: ATORVASTATIN CALCIUM
  4. ALMAGEL [Concomitant]
     Dosage: AMPULES
  5. SORBIFER DURULES [Concomitant]
     Active Substance: FERROUS SULFATE
  6. BRILINTA [Suspect]
     Active Substance: TICAGRELOR
     Indication: STENT PLACEMENT
     Route: 048
     Dates: start: 201809, end: 20190730
  7. OMEZ [Concomitant]
     Active Substance: OMEPRAZOLE
  8. BRILINTA [Suspect]
     Active Substance: TICAGRELOR
     Indication: MYOCARDIAL INFARCTION
     Route: 048
     Dates: start: 201809, end: 20190730
  9. DEPRENORM [Concomitant]
  10. EGYLOK [Concomitant]
  11. FERRULEX [Concomitant]
     Dosage: AMPULES

REACTIONS (5)
  - Gastric cancer [Not Recovered/Not Resolved]
  - Myocardial infarction [Unknown]
  - Metastases to lymph nodes [Not Recovered/Not Resolved]
  - Drug ineffective [Recovered/Resolved]
  - Gastric ulcer [Unknown]

NARRATIVE: CASE EVENT DATE: 201809
